FAERS Safety Report 13315760 (Version 1)
Quarter: 2017Q1

REPORT INFORMATION
  Report Type: Spontaneous
  Country: US (occurrence: US)
  Receive Date: 20170310
  Receipt Date: 20170310
  Transmission Date: 20170428
  Serious: Yes (Disabling, Other)
  Sender: FDA-Public Use
  Company Number: US-ZYDUS-014052

PATIENT
  Age: 30 Year
  Sex: Female

DRUGS (11)
  1. EPHEDRINE. [Suspect]
     Active Substance: EPHEDRINE
     Indication: FOETAL CARDIAC DISORDER
     Route: 065
  2. ETOMIDATE. [Concomitant]
     Active Substance: ETOMIDATE
     Indication: AORTIC SURGERY
     Route: 065
  3. EPHEDRINE. [Suspect]
     Active Substance: EPHEDRINE
     Indication: FOETAL CARDIAC DISORDER
     Route: 065
  4. NITROGLYCERIN. [Suspect]
     Active Substance: NITROGLYCERIN
     Indication: HYPERTENSION
     Route: 065
  5. VECURONIUM/VECURONIUM BROMIDE [Concomitant]
     Active Substance: VECURONIUM BROMIDE
     Indication: AORTIC SURGERY
     Route: 065
  6. NITROGLYCERIN. [Suspect]
     Active Substance: NITROGLYCERIN
     Indication: UTERINE ATONY
     Route: 065
  7. TERBUTALINE [Suspect]
     Active Substance: TERBUTALINE
     Indication: UTERINE ATONY
     Route: 065
  8. ISOFLURANE. [Concomitant]
     Active Substance: ISOFLURANE
     Indication: AORTIC SURGERY
     Dosage: MAINTAINED ON 0.8 MINIMUM ALVEOLAR CONCENTRATION?OF ISOFLURANE AND RECEIVED A TOTAL OF 2.5 L CRYSTA
     Route: 065
  9. NEOSTIGMINE [Concomitant]
     Active Substance: NEOSTIGMINE
     Indication: NEUROMUSCULAR BLOCKADE REVERSAL
     Route: 065
  10. FENTANYL. [Concomitant]
     Active Substance: FENTANYL
     Indication: AORTIC SURGERY
     Route: 065
  11. GLYCOPYRRONIUM [Concomitant]
     Active Substance: GLYCOPYRRONIUM
     Indication: NEUROMUSCULAR BLOCKADE REVERSAL
     Route: 065

REACTIONS (2)
  - Exposure during pregnancy [Unknown]
  - Pulmonary oedema [Recovering/Resolving]
